FAERS Safety Report 18522537 (Version 2)
Quarter: 2020Q4

REPORT INFORMATION
  Report Type: Other
  Country: US (occurrence: US)
  Receive Date: 20201119
  Receipt Date: 20201202
  Transmission Date: 20210114
  Serious: Yes (Hospitalization)
  Sender: FDA-Public Use
  Company Number: US-ROCHE-2715215

PATIENT
  Sex: Male
  Weight: 75.2 kg

DRUGS (11)
  1. SMX/TMP [Concomitant]
     Active Substance: SULFAMETHOXAZOLE\TRIMETHOPRIM
     Dosage: 800/160 MG 1 TAB PQ MWF
     Route: 048
  2. CHOLECALCIFEROL [Concomitant]
     Active Substance: CHOLECALCIFEROL
     Dosage: 50, 000 UNITS PO Q7 DAYS
     Route: 048
  3. NYSTATIN. [Concomitant]
     Active Substance: NYSTATIN
     Dosage: 500,000 UNITS /5 ML 60 ML BULK SWISH / SPIT TID
  4. ONDANSETRON [Concomitant]
     Active Substance: ONDANSETRON
     Dosage: 4 MG TAB 1 TABLET PO Q8HR PRN
     Route: 048
  5. SODIUM CHLORIDE. [Concomitant]
     Active Substance: SODIUM CHLORIDE
     Dosage: 0.9% 250 ML IVPB DAY OF TREATMENT PRN
     Route: 058
  6. GANCICLOVIR. [Suspect]
     Active Substance: GANCICLOVIR
     Indication: PRODUCT USED FOR UNKNOWN INDICATION
     Dosage: Q 12 HR
     Route: 042
     Dates: start: 20201110
  7. POVIDONE-IODINE. [Concomitant]
     Active Substance: POVIDONE-IODINE
     Dosage: 1 APP, NASAL Q WED
     Route: 045
  8. BACTRIM DS [Concomitant]
     Active Substance: SULFAMETHOXAZOLE\TRIMETHOPRIM
     Dosage: 800 MG -160 MG 1 TAB PQ MWF
     Route: 048
  9. FLUAD NOS [Concomitant]
     Active Substance: INFLUENZA VIRUS VACCINE
     Dosage: 0.5 ML INJ IM ONCE
  10. DOCUSATE SODIUM. [Concomitant]
     Active Substance: DOCUSATE SODIUM
     Dosage: 1 CAPS PO Q12 HR PRN
     Route: 048
  11. VINCRISTINE [Concomitant]
     Active Substance: VINCRISTINE
     Dosage: SODIUM CHLORIDE 0.9 % 105 ML

REACTIONS (9)
  - Pyrexia [Recovered/Resolved]
  - Candida infection [Unknown]
  - Photophobia [Unknown]
  - Eye pain [Unknown]
  - Fatigue [Unknown]
  - Erythema [Unknown]
  - Hypotension [Unknown]
  - Vision blurred [Unknown]
  - Decreased appetite [Unknown]
